FAERS Safety Report 20693240 (Version 2)
Quarter: 2022Q2

REPORT INFORMATION
  Report Type: Spontaneous
  Country: US (occurrence: US)
  Receive Date: 20220410
  Receipt Date: 20220601
  Transmission Date: 20220721
  Serious: No
  Sender: FDA-Public Use
  Company Number: US-CELGENE-USA-20211200994

PATIENT
  Age: 81 Year
  Sex: Male
  Weight: 85.72 kg

DRUGS (3)
  1. POMALYST [Suspect]
     Active Substance: POMALIDOMIDE
     Indication: Plasma cell myeloma
     Dosage: 2W, 1 W OFF
     Route: 048
     Dates: start: 20211101
  2. POMALYST [Suspect]
     Active Substance: POMALIDOMIDE
     Dosage: 3 MILLIGRAM
     Route: 048
     Dates: start: 20211112
  3. POMALYST [Suspect]
     Active Substance: POMALIDOMIDE
     Dosage: 2W,1W OFF.
     Route: 048
     Dates: start: 20211101

REACTIONS (6)
  - Quality of life decreased [Unknown]
  - Dizziness [Unknown]
  - Fatigue [Unknown]
  - Myalgia [Unknown]
  - Nausea [Unknown]
  - Off label use [Unknown]
